FAERS Safety Report 18611142 (Version 2)
Quarter: 2024Q1

REPORT INFORMATION
  Report Type: Spontaneous
  Country: US (occurrence: US)
  Receive Date: 20201214
  Receipt Date: 20240116
  Transmission Date: 20240410
  Serious: No
  Sender: FDA-Public Use
  Company Number: US-PFIZER INC-2020489470

PATIENT
  Age: 41 Year
  Sex: Female

DRUGS (1)
  1. ELELYSO [Suspect]
     Active Substance: TALIGLUCERASE ALFA
     Dosage: 3200 UNITS EVERY TWO WEEKS

REACTIONS (2)
  - COVID-19 [Unknown]
  - Product dose omission issue [Unknown]
